FAERS Safety Report 5485426-X (Version None)
Quarter: 2007Q4

REPORT INFORMATION
  Report Type: 
  Country: None (occurrence: None)
  Receive Date: 20071015
  Receipt Date: 20071004
  Transmission Date: 20080405
  Serious: Yes (Hospitalization, Other)
  Sender: FDA-Public Use
  Company Number: US-AVENTIS-200717054US

PATIENT
  Age: 84 Year
  Sex: Female

DRUGS (5)
  1. LANTUS [Suspect]
     Dates: end: 20070901
  2. NOVOLOG [Suspect]
     Dosage: DOSE: UNK
  3. THYROID PREPARATIONS [Concomitant]
     Dosage: DOSE: UNK
  4. CHOLESTEROL- AND TRIGLYCERIDE REDUCERS [Concomitant]
     Dosage: DOSE: UNK
  5. ANTIHYPERTENSIVES [Concomitant]
     Dosage: DOSE: UNK

REACTIONS (6)
  - BLOOD GLUCOSE DECREASED [None]
  - BLOOD GLUCOSE INCREASED [None]
  - FALL [None]
  - HYPOGLYCAEMIC UNCONSCIOUSNESS [None]
  - LIMB INJURY [None]
  - SHOCK HYPOGLYCAEMIC [None]
